FAERS Safety Report 12464378 (Version 1)
Quarter: 2016Q2

REPORT INFORMATION
  Report Type: Spontaneous
  Country: US (occurrence: None)
  Receive Date: 20160613
  Receipt Date: 20160613
  Transmission Date: 20160815
  Serious: No
  Sender: FDA-Public Use
  Company Number: None

PATIENT
  Age: 58 Year
  Sex: Female
  Weight: 95.26 kg

DRUGS (6)
  1. BLISTEX [Suspect]
     Active Substance: BENZOCAINE
     Indication: LIP DRY
     Dosage: APPLIED TO A SURFACE, USUALLY THE SKIN
     Route: 061
     Dates: start: 20160604, end: 20160604
  2. TOZAL [Concomitant]
     Active Substance: ALPHA-TOCOPHEROL\ASCORBIC ACID\CHOLECALCIFEROL\COPPER\CYANOCOBALAMIN\FOLIC ACID\LUTEIN\OMEGA-3 FATTY ACIDS\PYRIDOXINE HYDROCHLORIDE\TAURINE\VITAMIN A PALMITATE\ZEAXANTHIN\ZINC PICOLINATE
  3. ASPIRIN. [Concomitant]
     Active Substance: ASPIRIN
  4. ALIVE 50+ MULTI VITAMIN [Concomitant]
  5. MULTI MINERAL [Concomitant]
  6. ADVIL PM [Concomitant]
     Active Substance: DIPHENHYDRAMINE CITRATE\IBUPROFEN

REACTIONS (4)
  - Application site erythema [None]
  - Application site exfoliation [None]
  - Application site rash [None]
  - Chapped lips [None]

NARRATIVE: CASE EVENT DATE: 20160605
